FAERS Safety Report 6521822-7 (Version None)
Quarter: 2009Q4

REPORT INFORMATION
  Report Type: 
  Country: None (occurrence: None)
  Receive Date: 20091222
  Receipt Date: 20091123
  Transmission Date: 20100525
  Serious: No
  Sender: FDA-Public Use
  Company Number: 2009029252

PATIENT
  Age: 38 Year
  Sex: Female

DRUGS (2)
  1. FENTORA [Suspect]
     Indication: BACK PAIN
     Dosage: 3200 MCG (800 MCG, 4 IN 1 D), BU
     Route: 002
     Dates: start: 20070101
  2. OXYCONTIN [Concomitant]

REACTIONS (3)
  - MEDICATION ERROR [None]
  - TABLET ISSUE [None]
  - WRONG TECHNIQUE IN DRUG USAGE PROCESS [None]
